FAERS Safety Report 10169906 (Version 2)
Quarter: 2014Q2

REPORT INFORMATION
  Report Type: Spontaneous
  Country: US (occurrence: US)
  Receive Date: 20140513
  Receipt Date: 20140602
  Transmission Date: 20141212
  Serious: Yes (Disabling, Other)
  Sender: FDA-Public Use
  Company Number: US-UCBSA-120475

PATIENT
  Age: 40 Year
  Sex: Female
  Weight: 58.96 kg

DRUGS (2)
  1. KEPPRA [Suspect]
     Indication: CONVULSION
     Dosage: 250 MG, 2X/DAY (BID)
     Route: 048
     Dates: start: 201307, end: 2014
  2. EXCEDRIN [Concomitant]
     Indication: MIGRAINE
     Dosage: 2 TABS EVERY 4HRS AS NEEDED
     Route: 048

REACTIONS (3)
  - Convulsion [Recovered/Resolved]
  - Headache [Unknown]
  - Photophobia [Unknown]
